FAERS Safety Report 4282600-5 (Version None)
Quarter: 2004Q1

REPORT INFORMATION
  Report Type: 
  Country: None (occurrence: None)
  Receive Date: 20040130
  Receipt Date: 20020912
  Transmission Date: 20041129
  Serious: Yes (Other)
  Sender: FDA-Public Use
  Company Number: US-BRISTOL-MYERS SQUIBB COMPANY-12035663

PATIENT
  Age: 46 Year
  Sex: Female
  Weight: 71 kg

DRUGS (1)
  1. SERZONE [Suspect]
     Dosage: 7/28/99 INCREASED TO 100 MG BID; 8/4/99: INCREASED TO 150 MG BID; PT. STOPPED ON 8/24/99.
     Route: 048
     Dates: start: 19990723, end: 19990824

REACTIONS (3)
  - CHOLESTASIS [None]
  - HEPATITIS [None]
  - HEPATOCELLULAR DAMAGE [None]
